FAERS Safety Report 11756113 (Version 1)
Quarter: 2015Q4

REPORT INFORMATION
  Report Type: Spontaneous
  Country: FR (occurrence: FR)
  Receive Date: 20151119
  Receipt Date: 20151119
  Transmission Date: 20160304
  Serious: No
  Sender: FDA-Public Use
  Company Number: FR-PHOTOCURE ASA-HX-PM-FR-150300002

PATIENT
  Age: 83 Year
  Sex: Female
  Weight: 53 kg

DRUGS (1)
  1. CYSVIEW [Suspect]
     Active Substance: HEXAMINOLEVULINATE HYDROCHLORIDE
     Indication: DIAGNOSTIC PROCEDURE
     Dosage: 85 MILLIGRAM
     Route: 043
     Dates: start: 20150209, end: 20150209

REACTIONS (1)
  - Bladder pain [Recovered/Resolved]

NARRATIVE: CASE EVENT DATE: 20150209
